FAERS Safety Report 9914307 (Version 3)
Quarter: 2014Q2

REPORT INFORMATION
  Report Type: Spontaneous
  Country: CA (occurrence: None)
  Receive Date: 20140218
  Receipt Date: 20140611
  Transmission Date: 20141212
  Serious: Yes (Other)
  Sender: FDA-Public Use
  Company Number: CA-014660

PATIENT
  Age: 90 Year
  Sex: Male

DRUGS (3)
  1. FIRMAGON [Suspect]
     Indication: PROSTATE CANCER
     Dosage: 80 MG, ONCE A MONTH SUBCUTANEOUS TO CONTINUING?
     Route: 058
     Dates: start: 20130205
  2. CALCIUM/VITAMIN D /01204201/ [Concomitant]
  3. ZYTIGA [Concomitant]

REACTIONS (1)
  - Device related sepsis [None]
